FAERS Safety Report 15291958 (Version 1)
Quarter: 2018Q3

REPORT INFORMATION
  Report Type: Report from Study
  Country: None (occurrence: CA)
  Receive Date: 20180817
  Receipt Date: 20180817
  Transmission Date: 20181010
  Serious: Yes (Hospitalization, Other)
  Sender: FDA-Public Use
  Company Number: CA-ABBVIE-18K-028-2449731-00

PATIENT
  Age: 71 Year
  Sex: Female

DRUGS (1)
  1. HUMIRA [Suspect]
     Active Substance: ADALIMUMAB
     Indication: PSORIATIC ARTHROPATHY
     Route: 058
     Dates: start: 20161216

REACTIONS (10)
  - Gastrointestinal infection [Not Recovered/Not Resolved]
  - Blood iron decreased [Not Recovered/Not Resolved]
  - Reaction to azo-dyes [Unknown]
  - Haemoglobin decreased [Not Recovered/Not Resolved]
  - Bowel preparation [Unknown]
  - Diarrhoea [Unknown]
  - Intestinal obstruction [Unknown]
  - Erosive oesophagitis [Unknown]
  - Pharyngeal disorder [Unknown]
  - Red blood cell count decreased [Not Recovered/Not Resolved]

NARRATIVE: CASE EVENT DATE: 201805
